FAERS Safety Report 5098676-1 (Version None)
Quarter: 2006Q3

REPORT INFORMATION
  Report Type: 
  Country: None (occurrence: None)
  Receive Date: 20060905
  Receipt Date: 20060824
  Transmission Date: 20061208
  Serious: Yes (Other)
  Sender: FDA-Public Use
  Company Number: MEDI-0004873

PATIENT
  Sex: Female

DRUGS (3)
  1. ETHYOL [Suspect]
  2. RADIATION THERAPY [Concomitant]
  3. CHEMOTHERAPY DRUG [Concomitant]

REACTIONS (1)
  - NEUTROPENIA [None]
